FAERS Safety Report 8859910 (Version 1)
Quarter: 2012Q4

REPORT INFORMATION
  Report Type: Report from Study
  Country: JP (occurrence: JP)
  Receive Date: 20121025
  Receipt Date: 20121025
  Transmission Date: 20130627
  Serious: Yes (Other)
  Sender: FDA-Public Use
  Company Number: JP-VERTEX PHARMACEUTICAL INC.-AE-2012-005591

PATIENT
  Age: 64 Year
  Sex: Male

DRUGS (7)
  1. VX-950 [Suspect]
     Indication: HEPATITIS C
     Dosage: 2250 mg, qd
     Route: 048
     Dates: start: 20120224, end: 20120301
  2. VX-950 [Suspect]
     Dosage: 1500 mg, qd
     Route: 048
     Dates: start: 20120302
  3. REBETOL [Suspect]
     Indication: HEPATITIS C
     Dosage: 800 mg, qd
     Route: 048
     Dates: start: 20120224, end: 20120308
  4. REBETOL [Suspect]
     Dosage: 600 mg, qd
     Route: 048
     Dates: start: 20120309
  5. PEGINTRON                          /01543001/ [Suspect]
     Indication: HEPATITIS C
     Dosage: 1.35 ?g/kg, UNK
     Route: 058
     Dates: start: 20120224
  6. ZETIA [Concomitant]
     Dosage: 10 mg, qd
     Route: 048
  7. NAUZELIN [Concomitant]
     Dosage: 10 mg, qd
     Route: 048
     Dates: start: 20120224, end: 20120330

REACTIONS (1)
  - White blood cell count decreased [Recovered/Resolved]
